FAERS Safety Report 9204011 (Version 2)
Quarter: 2013Q4

REPORT INFORMATION
  Report Type: Report from Study
  Country: JP (occurrence: JP)
  Receive Date: 20130402
  Receipt Date: 20131011
  Transmission Date: 20140711
  Serious: Yes (Hospitalization, Other)
  Sender: FDA-Public Use
  Company Number: PHHY2013JP031429

PATIENT
  Age: 19 Year
  Sex: Female

DRUGS (29)
  1. FTY 720 [Suspect]
     Indication: MULTIPLE SCLEROSIS
     Dosage: 0.5 MG, QD
     Route: 048
     Dates: start: 20120808, end: 20121114
  2. PROTOPIC [Concomitant]
     Route: 061
     Dates: start: 20120817, end: 20121101
  3. HIRUDOID [Concomitant]
     Route: 061
     Dates: start: 20120817, end: 20120920
  4. HIRUDOID [Concomitant]
     Dates: start: 20120921
  5. ANTEBATE [Concomitant]
     Route: 061
     Dates: start: 20120921, end: 20120927
  6. LIDOMEX [Concomitant]
     Route: 061
     Dates: start: 20120921, end: 20120927
  7. PREDONINE [Concomitant]
     Route: 031
     Dates: start: 20120921, end: 20120927
  8. PANDEL [Concomitant]
     Route: 061
     Dates: start: 20120921, end: 20120927
  9. RINDERON-VG [Concomitant]
     Route: 061
     Dates: start: 20120921, end: 20120927
  10. PREDNISOLONE [Concomitant]
     Dosage: 15 MG, UNK
     Route: 048
     Dates: start: 20120921, end: 20120923
  11. PREDNISOLONE [Concomitant]
     Dosage: 10 MG, UNK
     Route: 048
     Dates: start: 20120924, end: 20120925
  12. PREDNISOLONE [Concomitant]
     Dosage: 5 MG, UNK
     Route: 048
     Dates: start: 20120926, end: 20120927
  13. MUCOSTA [Concomitant]
     Dosage: 300 MG, UNK
     Route: 048
     Dates: start: 20120921, end: 20120923
  14. MUCOSTA [Concomitant]
     Dosage: 200 MG, UNK
     Route: 048
     Dates: start: 20120924, end: 20120925
  15. MUCOSTA [Concomitant]
     Dosage: 100 MG, UNK
     Route: 048
     Dates: start: 20120926, end: 20120927
  16. SELBEX [Concomitant]
     Dosage: 50 MG, PRN
     Route: 048
     Dates: start: 20120925
  17. RIZABEN [Concomitant]
     Route: 031
     Dates: start: 20120926, end: 20121005
  18. NERISONA [Concomitant]
     Route: 061
     Dates: start: 20120928, end: 20121101
  19. KINDAVATE [Concomitant]
     Route: 061
     Dates: start: 20121102
  20. TOPINA [Concomitant]
     Dosage: 50 MG, UNK
     Route: 048
     Dates: start: 20121212
  21. TOPINA [Concomitant]
     Dosage: 100 MG, UNK
     Route: 048
     Dates: start: 20121219
  22. PHENOBAL [Concomitant]
     Dosage: 90 MG, UNK
     Route: 048
  23. E KEPPRA [Concomitant]
     Dosage: 1500 MG, UNK
     Route: 048
     Dates: end: 20121016
  24. E KEPPRA [Concomitant]
     Dosage: 2000 MG, UNK
     Route: 048
     Dates: start: 20121017, end: 20121113
  25. E KEPPRA [Concomitant]
     Dosage: 2500 MG, UNK
     Route: 048
     Dates: start: 20121114, end: 20121211
  26. E KEPPRA [Concomitant]
     Dosage: 1000 MG, UNK
     Route: 048
     Dates: start: 20121212
  27. KAMISHOYOSAN [Concomitant]
     Dosage: 6 G, UNK
     Route: 048
     Dates: end: 20121016
  28. ALLEGRA [Concomitant]
     Dosage: 120 MG, UNK
     Route: 048
  29. ZINC OXIDE [Concomitant]
     Dates: end: 20120927

REACTIONS (6)
  - Dysuria [Recovered/Resolved]
  - Dermatitis atopic [Recovered/Resolved]
  - Epilepsy [Recovering/Resolving]
  - Conjunctivitis [Recovered/Resolved]
  - Dysmenorrhoea [Recovered/Resolved]
  - Lymphocyte count decreased [Recovered/Resolved]
